FAERS Safety Report 8244712-0 (Version None)
Quarter: 2012Q1

REPORT INFORMATION
  Report Type: 
  Country: None (occurrence: None)
  Receive Date: 20120329
  Receipt Date: 20110211
  Transmission Date: 20120608
  Serious: No
  Sender: FDA-Public Use
  Company Number: US-MYLANLABS-2011S1003001

PATIENT
  Age: 63 Year
  Sex: Female

DRUGS (11)
  1. NEXIUM [Concomitant]
     Indication: GASTRIC DISORDER
  2. SERTRALINE HYDROCHLORIDE [Concomitant]
     Indication: ANXIETY
  3. DARVOCET [Concomitant]
  4. FENTANYL-100 [Suspect]
     Dosage: CHANGED Q72H
     Route: 062
  5. CELEBREX [Concomitant]
  6. FENTANYL-100 [Suspect]
     Indication: ARTHRITIS
     Dosage: CHANGED Q72H
     Route: 062
     Dates: start: 20090101
  7. TRAMADOL [Concomitant]
  8. AMITRIPTYLINE HCL [Concomitant]
  9. FENTANYL-100 [Suspect]
     Dosage: CHANGED Q72H
     Route: 062
  10. FENTANYL-100 [Suspect]
     Indication: ARTHRALGIA
     Dosage: CHANGED Q72H
     Route: 062
     Dates: start: 20090101
  11. LISINOPRIL [Concomitant]
     Indication: BLOOD PRESSURE

REACTIONS (3)
  - DRUG EFFECT DECREASED [None]
  - DRUG WITHDRAWAL SYNDROME [None]
  - PAIN [None]
